FAERS Safety Report 7591762-3 (Version None)
Quarter: 2011Q2

REPORT INFORMATION
  Report Type: 
  Country: None (occurrence: None)
  Receive Date: 20110627
  Receipt Date: 20110610
  Transmission Date: 20111010
  Serious: Yes (Hospitalization)
  Sender: FDA-Public Use
  Company Number: 2011-00640

PATIENT
  Age: 60 Year
  Sex: Male

DRUGS (13)
  1. LANSOPRAZOLE [Suspect]
     Indication: PRODUCT USED FOR UNKNOWN INDICATION
     Dosage: 15 MG (15 MG, 1 IN 1 D), ORAL
     Route: 048
     Dates: end: 20110603
  2. WARFARIN SODIUM [Suspect]
     Dosage: 4 MG (1 MG 4 IN 1 D), ORAL
     Route: 048
     Dates: end: 20110531
  3. EPINASTINE HYDROCHLORIDE [Suspect]
     Indication: PRODUCT USED FOR UNKNOWN INDICATION
     Dosage: 20 MG, 1 IN 1 D, ORAL
     Route: 048
     Dates: start: 20110414, end: 20110603
  4. PIRMENOL HYDROCHLORIDE/HYDRATE (PIMENOL) (CAPSULES) [Suspect]
     Indication: PRODUCT USED FOR UNKNOWN INDICATION
     Dosage: 50 MG X 2 CAPSULES X 2 (50 MG), ORAL
     Route: 048
     Dates: end: 20110603
  5. MAGNESIUM OXIDE (MAGMITT) (TABLETS) [Suspect]
     Indication: PRODUCT USED FOR UNKNOWN INDICATION
     Dosage: 250 MG X 3T X 3 (250 MG), ORAL
     Route: 048
     Dates: start: 20090704, end: 20110531
  6. MOSAPRIDE CITRATE/HYDRATE (GASMOTIN) (CAPSULES) [Suspect]
     Indication: PRODUCT USED FOR UNKNOWN INDICATION
     Dosage: 5 MG X 3T X 3 (5 MG), ORAL
     Route: 048
     Dates: start: 20091201, end: 20110603
  7. MECOBALAMINE (IMECOBALAMIN) (CAPSULES) [Suspect]
     Indication: PRODUCT USED FOR UNKNOWN INDICATION
     Dosage: 500 UG X 3T X 3 (500 MCG), ORAL
     Route: 048
     Dates: start: 20100303, end: 20110603
  8. AMLODIPINE BESYLATE [Suspect]
     Indication: PRODUCT USED FOR UNKNOWN INDICATION
     Dosage: 5 MG (5 MG, 1 IN 1 D), ORAL
     Route: 048
     Dates: end: 20110603
  9. DIOVAN [Suspect]
     Indication: PRODUCT USED FOR UNKNOWN INDICATION
     Dosage: 160 MG, (60 MG, 2 IN 1 D), ORAL
     Route: 048
     Dates: end: 20110603
  10. DOXAZOSIN MESILATE (CADEMESIN) (TABLETS) [Suspect]
     Indication: PRODUCT USED FOR UNKNOWN INDICATION
     Dosage: 4 MG (2 MG, 2 IN 1 D), ORAL
     Route: 048
     Dates: end: 20110603
  11. SAIREI-TO (SAIREI-TO) (TABLETS) [Suspect]
     Indication: PRODUCT USED FOR UNKNOWN INDICATION
     Dosage: 8.1 MG X 2 T X 2 (8.1 MG), ORAL
     Route: 048
     Dates: start: 20100617, end: 20110530
  12. BISOPROLOL FUMARATE (MAINHEART) [Suspect]
     Indication: PRODUCT USED FOR UNKNOWN INDICATION
     Dosage: 5 MG (2.5 MG, 2 IN 1 D), ORAL
     Route: 048
     Dates: end: 20110603
  13. MEXITIL [Suspect]
     Indication: PRODUCT USED FOR UNKNOWN INDICATION
     Dosage: 50MG X 6TX3 (50 MG), ORAL
     Route: 048
     Dates: end: 20110603

REACTIONS (12)
  - GAMMA-GLUTAMYLTRANSFERASE INCREASED [None]
  - BLOOD AMYLASE INCREASED [None]
  - LIVER DISORDER [None]
  - PRURITUS [None]
  - BLOOD CREATINE PHOSPHOKINASE INCREASED [None]
  - COLD SWEAT [None]
  - PRURITUS GENERALISED [None]
  - ALANINE AMINOTRANSFERASE INCREASED [None]
  - DYSPNOEA [None]
  - COUGH [None]
  - ASPARTATE AMINOTRANSFERASE INCREASED [None]
  - BLOOD LACTATE DEHYDROGENASE INCREASED [None]
